FAERS Safety Report 16913262 (Version 1)
Quarter: 2019Q4

REPORT INFORMATION
  Report Type: Report from Study
  Country: CA (occurrence: CA)
  Receive Date: 20191014
  Receipt Date: 20191014
  Transmission Date: 20200122
  Serious: No
  Sender: FDA-Public Use
  Company Number: CA-BEH-2019106778

PATIENT
  Age: 35 Year
  Sex: Female

DRUGS (3)
  1. HIZENTRA [Suspect]
     Active Substance: HUMAN IMMUNOGLOBULIN G
     Dosage: UNK
     Route: 058
  2. BENADRYL [Concomitant]
     Active Substance: DIPHENHYDRAMINE HYDROCHLORIDE
     Indication: PREMEDICATION
     Route: 065
  3. HIZENTRA [Suspect]
     Active Substance: HUMAN IMMUNOGLOBULIN G
     Indication: DERMATOMYOSITIS
     Dosage: 30 GRAM, QW
     Route: 058
     Dates: start: 20190908

REACTIONS (8)
  - Injection site pruritus [Unknown]
  - No adverse event [Unknown]
  - Product use in unapproved indication [Unknown]
  - Injection site erythema [Unknown]
  - Injection site swelling [Recovered/Resolved with Sequelae]
  - Injection site discolouration [Not Recovered/Not Resolved]
  - Injection site urticaria [Recovering/Resolving]
  - Injection site pain [Not Recovered/Not Resolved]

NARRATIVE: CASE EVENT DATE: 20190908
